FAERS Safety Report 9798688 (Version 1)
Quarter: 2014Q1

REPORT INFORMATION
  Report Type: Spontaneous
  Country: US (occurrence: None)
  Receive Date: 20140103
  Receipt Date: 20140103
  Transmission Date: 20141002
  Serious: No
  Sender: FDA-Public Use
  Company Number: None

PATIENT
  Age: 92 Year
  Sex: Male
  Weight: 57.9 kg

DRUGS (2)
  1. MORPHINE [Suspect]
     Indication: CONVULSION
     Route: 048
     Dates: start: 20130626, end: 20130826
  2. MORPHINE [Suspect]
     Route: 058
     Dates: start: 20130705, end: 20130826

REACTIONS (2)
  - Pulse absent [None]
  - Agitation [None]
